FAERS Safety Report 10363103 (Version 1)
Quarter: 2014Q3

REPORT INFORMATION
  Report Type: Spontaneous
  Country: US (occurrence: US)
  Receive Date: 20140805
  Receipt Date: 20140805
  Transmission Date: 20150326
  Serious: Yes (Hospitalization)
  Sender: FDA-Public Use
  Company Number: US-ELI_LILLY_AND_COMPANY-US201407009022

PATIENT
  Sex: Female

DRUGS (3)
  1. TOPAMAX [Concomitant]
     Active Substance: TOPIRAMATE
     Dosage: UNK, UNKNOWN
     Route: 065
  2. CYMBALTA [Suspect]
     Active Substance: DULOXETINE HYDROCHLORIDE
     Indication: NEURALGIA
  3. CYMBALTA [Suspect]
     Active Substance: DULOXETINE HYDROCHLORIDE
     Indication: FIBROMYALGIA
     Dosage: 60 MG, UNK
     Route: 065
     Dates: end: 201404

REACTIONS (18)
  - Depression [Unknown]
  - Hypotension [Unknown]
  - Anxiety [Unknown]
  - Stress [Unknown]
  - Pain [Unknown]
  - Bone density increased [Unknown]
  - Asthenia [Unknown]
  - Fatigue [Unknown]
  - Chest pain [Unknown]
  - Hypokinesia [Unknown]
  - Panic reaction [Unknown]
  - Musculoskeletal pain [Unknown]
  - Sleep disorder [Unknown]
  - Polydipsia psychogenic [Unknown]
  - Road traffic accident [Unknown]
  - Pulmonary pain [Unknown]
  - Fibromyalgia [Unknown]
  - Joint swelling [Unknown]

NARRATIVE: CASE EVENT DATE: 201406
